FAERS Safety Report 8316447-7 (Version None)
Quarter: 2012Q2

REPORT INFORMATION
  Report Type: 
  Country: None (occurrence: None)
  Receive Date: 20120425
  Receipt Date: 20120425
  Transmission Date: 20120825
  Serious: Yes (Life-Threatening)
  Sender: FDA-Public Use
  Company Number: None

PATIENT
  Age: 95 Year
  Sex: Female
  Weight: 24.4942 kg

DRUGS (2)
  1. COUMADIN [Suspect]
     Indication: PULMONARY EMBOLISM
     Dosage: 2 MG DAILY ORAL
     Route: 048
  2. COUMADIN [Suspect]
     Indication: DEEP VEIN THROMBOSIS
     Dosage: 2 MG DAILY ORAL
     Route: 048

REACTIONS (2)
  - RECTAL HAEMORRHAGE [None]
  - ABDOMINAL PAIN [None]
